FAERS Safety Report 25230651 (Version 1)
Quarter: 2025Q2

REPORT INFORMATION
  Report Type: Other
  Country: SI (occurrence: SI)
  Receive Date: 20250423
  Receipt Date: 20250423
  Transmission Date: 20250717
  Serious: Yes (Hospitalization)
  Sender: INNOGENIX, LLC
  Company Number: SI-Innogenix, LLC-2175458

PATIENT
  Sex: Male

DRUGS (9)
  1. HALOPERIDOL [Suspect]
     Active Substance: HALOPERIDOL
     Indication: Mental disorder
     Dates: start: 1994
  2. RISPERIDONE [Interacting]
     Active Substance: RISPERIDONE
     Dates: start: 2018
  3. RAMIPRIL [Concomitant]
     Active Substance: RAMIPRIL
  4. RIVAROXABAN [Concomitant]
     Active Substance: RIVAROXABAN
  5. BISOPROLOL. [Concomitant]
  6. FUROSEMIDE [Concomitant]
     Active Substance: FUROSEMIDE
  7. CLONAZEPAM [Concomitant]
     Active Substance: CLONAZEPAM
  8. VALPROIC ACID [Suspect]
     Active Substance: VALPROIC ACID
     Dates: start: 2011
  9. AMIODARONE HYDROCHLORIDE [Interacting]
     Active Substance: AMIODARONE HYDROCHLORIDE

REACTIONS (2)
  - Extrapyramidal disorder [Unknown]
  - Drug interaction [Unknown]
